FAERS Safety Report 7277404-5 (Version None)
Quarter: 2011Q1

REPORT INFORMATION
  Report Type: 
  Country: None (occurrence: None)
  Receive Date: 20110207
  Receipt Date: 20110126
  Transmission Date: 20110831
  Serious: Yes (Other)
  Sender: FDA-Public Use
  Company Number: CL-JNJFOC-20100503888

PATIENT
  Sex: Female
  Weight: 65 kg

DRUGS (17)
  1. METHOTREXATE [Suspect]
     Route: 048
  2. SERTRALINE [Concomitant]
     Route: 048
  3. GOLIMUMAB [Suspect]
     Route: 058
  4. PARACETAMOL [Concomitant]
     Route: 048
  5. ENALAPRIL MALEATE [Concomitant]
     Route: 048
  6. ASPIRIN [Concomitant]
     Route: 048
  7. GOLIMUMAB [Suspect]
     Indication: RHEUMATOID ARTHRITIS
     Route: 058
  8. GOLIMUMAB [Suspect]
     Route: 058
  9. METHOTREXATE [Suspect]
     Indication: RHEUMATOID ARTHRITIS
     Route: 048
  10. PREDNISONE [Concomitant]
     Route: 048
  11. SERTRALINE [Concomitant]
     Route: 048
  12. DOLOSPAM [Concomitant]
     Route: 048
  13. PLACEBO [Suspect]
     Indication: RHEUMATOID ARTHRITIS
     Route: 058
  14. METHOTREXATE [Concomitant]
     Route: 048
  15. FOLIC ACID [Concomitant]
     Route: 048
  16. CYCLOBENZAPRINE [Concomitant]
     Route: 048
  17. PARACETAMOL [Concomitant]
     Route: 048

REACTIONS (1)
  - FIBROCYSTIC BREAST DISEASE [None]
